FAERS Safety Report 17356725 (Version 2)
Quarter: 2020Q1

REPORT INFORMATION
  Report Type: Spontaneous
  Country: FR (occurrence: FR)
  Receive Date: 20200131
  Receipt Date: 20200224
  Transmission Date: 20200409
  Serious: Yes (Other)
  Sender: FDA-Public Use
  Company Number: FR-PFIZER INC-2020038449

PATIENT
  Age: 58 Year
  Sex: Female
  Weight: 48 kg

DRUGS (7)
  1. LOVENOX [Suspect]
     Active Substance: ENOXAPARIN SODIUM
     Indication: THROMBOSIS
     Dosage: UNK
     Route: 058
     Dates: start: 20191218, end: 20191218
  2. EUTHYROX [Concomitant]
     Active Substance: LEVOTHYROXINE SODIUM
     Dosage: 100 UG, 1X/DAY
     Route: 048
  3. LANSOPRAZOLE. [Concomitant]
     Active Substance: LANSOPRAZOLE
     Dosage: 30 MG, 1X/DAY
     Route: 048
  4. FRAGMINE [Suspect]
     Active Substance: DALTEPARIN SODIUM
     Indication: THROMBOSIS
     Dosage: UNK
     Route: 058
     Dates: start: 20191218, end: 20200102
  5. INNOHEP [Suspect]
     Active Substance: TINZAPARIN SODIUM
     Indication: THROMBOSIS
     Dosage: 10000 IU, 1X/DAY
     Route: 058
     Dates: start: 201902, end: 20191211
  6. PARACETAMOL [Concomitant]
     Active Substance: ACETAMINOPHEN
     Indication: PAIN
     Dosage: 500 MG, UNK, (IN CASE OF PAIN)
     Route: 048
  7. KALEORID LP [Concomitant]
     Active Substance: POTASSIUM CHLORIDE
     Dosage: 1200 MG, 1X/DAY
     Route: 048

REACTIONS (1)
  - Erythromelalgia [Not Recovered/Not Resolved]

NARRATIVE: CASE EVENT DATE: 2019
